FAERS Safety Report 5004619-9 (Version None)
Quarter: 2006Q2

REPORT INFORMATION
  Report Type: 
  Country: None (occurrence: None)
  Receive Date: 20060512
  Receipt Date: 20060501
  Transmission Date: 20061013
  Serious: Yes (Death, Other)
  Sender: FDA-Public Use
  Company Number: 200605IM000270

PATIENT
  Age: 69 Year
  Sex: Male

DRUGS (4)
  1. ACTIMMUNE [Suspect]
     Indication: LUNG DISORDER
     Dosage: 200 UG, TIW, SUBCUTANEOUS
     Route: 058
     Dates: start: 20020712, end: 20020715
  2. PREDNISONE TAB [Concomitant]
  3. AZATHIOPRINE [Concomitant]
  4. PARACETAMOL [Concomitant]

REACTIONS (9)
  - ACUTE RESPIRATORY FAILURE [None]
  - ARTHRALGIA [None]
  - CHILLS [None]
  - CLUBBING [None]
  - CREPITATIONS [None]
  - MYALGIA [None]
  - PYREXIA [None]
  - RESTRICTIVE PULMONARY DISEASE [None]
  - THROMBOCYTOPENIA [None]
